FAERS Safety Report 23483611 (Version 3)
Quarter: 2024Q2

REPORT INFORMATION
  Report Type: Spontaneous
  Country: US (occurrence: US)
  Receive Date: 20240205
  Receipt Date: 20240501
  Transmission Date: 20240716
  Serious: No
  Sender: FDA-Public Use
  Company Number: US-PFIZER INC-202400031105

PATIENT
  Age: 80 Year
  Sex: Female
  Weight: 58.97 kg

DRUGS (6)
  1. COMIRNATY (RAXTOZINAMERAN) [Suspect]
     Active Substance: RAXTOZINAMERAN
     Indication: COVID-19 immunisation
     Dosage: DOSE 1, SINGLE
     Dates: start: 202309, end: 202309
  2. PAXLOVID [Suspect]
     Active Substance: NIRMATRELVIR\RITONAVIR
     Indication: COVID-19
     Dosage: 3PILLS IN THE MORNING AND 3 PILLS AT NIGHT FOR 5 DAYS
     Route: 048
  3. PNEUMOCOCCAL VACCINE POLYVALENT NOS [Suspect]
     Active Substance: PNEUMOCOCCAL VACCINE POLYVALENT
     Indication: Immunisation
     Dosage: DOSE NUMBER UNKNOWN, SINGLE
     Dates: start: 202309, end: 202309
  4. UNSPECIFIED INGREDIENT [Suspect]
     Active Substance: UNSPECIFIED INGREDIENT
     Indication: Immunisation
     Dosage: DOSE NUMBER UNKNOWN, SINGLE (VACUNA GRIPE) BEGINNING OF SEPTEMBER
     Dates: start: 202309, end: 202309
  5. UNSPECIFIED INGREDIENT [Suspect]
     Active Substance: UNSPECIFIED INGREDIENT
     Dosage: DOSE NUMBER UNKNOWN, SINGLE (VACUNA GRIPE) END OF SEPTEMBER
     Dates: start: 202309, end: 202309
  6. FARXIGA [Concomitant]
     Active Substance: DAPAGLIFLOZIN PROPANEDIOL
     Dosage: UNK

REACTIONS (1)
  - Alopecia [Unknown]
